FAERS Safety Report 13756406 (Version 5)
Quarter: 2017Q3

REPORT INFORMATION
  Report Type: Report from Study
  Country: GB (occurrence: GB)
  Receive Date: 20170714
  Receipt Date: 20170818
  Transmission Date: 20171127
  Serious: Yes (Other)
  Sender: FDA-Public Use
  Company Number: GB-TAKEDA-2017TUS014563

PATIENT
  Age: 47 Year
  Sex: Female
  Weight: 90 kg

DRUGS (3)
  1. AMITRIPTYLENE [Concomitant]
     Active Substance: AMITRIPTYLINE
     Dosage: 20 MG, QD
  2. VEDOLIZUMAB [Suspect]
     Active Substance: VEDOLIZUMAB
     Indication: CROHN^S DISEASE
     Dosage: UNK
     Route: 042
     Dates: start: 201610
  3. TARGINACT [Concomitant]
     Active Substance: NALOXONE HYDROCHLORIDE\OXYCODONE HYDROCHLORIDE
     Dosage: UNK UNK, BID
     Dates: start: 2014

REACTIONS (1)
  - Intervertebral disc protrusion [Not Recovered/Not Resolved]
